FAERS Safety Report 16908914 (Version 2)
Quarter: 2019Q4

REPORT INFORMATION
  Report Type: Spontaneous
  Country: US (occurrence: US)
  Receive Date: 20191011
  Receipt Date: 20191014
  Transmission Date: 20200122
  Serious: Yes (Other)
  Sender: FDA-Public Use
  Company Number: US-PFIZER INC-2019436608

PATIENT
  Age: 60 Year
  Sex: Male
  Weight: 90.72 kg

DRUGS (1)
  1. CHANTIX [Suspect]
     Active Substance: VARENICLINE TARTRATE
     Indication: EX-TOBACCO USER
     Dosage: 1 PILL IN THE MORNING AND 1 PILL AT NIGHT

REACTIONS (14)
  - Insomnia [Unknown]
  - Abnormal dreams [Not Recovered/Not Resolved]
  - Aggression [Recovered/Resolved]
  - Eating disorder [Not Recovered/Not Resolved]
  - Feeling abnormal [Unknown]
  - Secondary hypertension [Unknown]
  - Diarrhoea [Not Recovered/Not Resolved]
  - Nausea [Not Recovered/Not Resolved]
  - Depression [Unknown]
  - Loss of consciousness [Unknown]
  - Anxiety [Not Recovered/Not Resolved]
  - Vomiting [Recovering/Resolving]
  - Thinking abnormal [Unknown]
  - Sleep disorder [Not Recovered/Not Resolved]

NARRATIVE: CASE EVENT DATE: 20191004
